FAERS Safety Report 23251044 (Version 1)
Quarter: 2023Q4

REPORT INFORMATION
  Report Type: Spontaneous
  Country: US (occurrence: US)
  Receive Date: 20231201
  Receipt Date: 20231201
  Transmission Date: 20240109
  Serious: Yes (Hospitalization)
  Sender: FDA-Public Use
  Company Number: US-CURIUM-2023000899

PATIENT
  Age: 76 Year
  Sex: Male

DRUGS (1)
  1. SODIUM IODIDE I-131 [Suspect]
     Active Substance: SODIUM IODIDE I-131
     Indication: Graves^ disease
     Route: 065

REACTIONS (1)
  - Endocrine ophthalmopathy [Recovering/Resolving]
